FAERS Safety Report 4681046-5 (Version None)
Quarter: 2005Q2

REPORT INFORMATION
  Report Type: 
  Country: None (occurrence: None)
  Receive Date: 20050601
  Receipt Date: 20050601
  Transmission Date: 20051028
  Serious: Yes (Death)
  Sender: FDA-Public Use
  Company Number: None

PATIENT
  Age: 77 Year
  Sex: Male
  Weight: 80.5 kg

DRUGS (1)
  1. WARFARIN 2MG [Suspect]
     Indication: ATRIAL FIBRILLATION
     Dosage: 2MG DAILY ORAL
     Route: 048

REACTIONS (6)
  - COMA [None]
  - FALL [None]
  - HAEMORRHAGE INTRACRANIAL [None]
  - POST PROCEDURAL COMPLICATION [None]
  - POST PROCEDURAL HAEMORRHAGE [None]
  - SUBDURAL HAEMATOMA [None]
